FAERS Safety Report 7605808-7 (Version None)
Quarter: 2011Q3

REPORT INFORMATION
  Report Type: 
  Country: None (occurrence: None)
  Receive Date: 20110713
  Receipt Date: 20110704
  Transmission Date: 20111222
  Serious: Yes (Hospitalization, Other)
  Sender: FDA-Public Use
  Company Number: BE-ASTRAZENECA-2011SE39829

PATIENT
  Age: 11065 Day
  Sex: Female

DRUGS (18)
  1. LAXOBERON [Concomitant]
     Indication: CONSTIPATION PROPHYLAXIS
     Dosage: AS REQUIRED
     Route: 048
  2. OXYCODONE HCL [Concomitant]
     Indication: BACK PAIN
     Route: 048
     Dates: start: 20110419
  3. ZOMETA [Concomitant]
     Indication: METASTASES TO BONE
     Route: 042
     Dates: start: 20110419
  4. CALCIUM CARBONATE [Concomitant]
     Indication: MINERAL SUPPLEMENTATION
     Route: 048
     Dates: start: 20110210
  5. TARGINACT [Concomitant]
     Indication: BACK PAIN
     Route: 048
     Dates: start: 20110210
  6. REDOMEX [Concomitant]
     Indication: BACK PAIN
     Route: 048
     Dates: start: 20110313
  7. PANTOPRAZOLE [Concomitant]
     Indication: PROPHYLAXIS AGAINST GASTROINTESTINAL ULCER
     Route: 048
  8. ELTHYRONE [Concomitant]
     Indication: HYPOTHYROIDISM
     Route: 048
     Dates: start: 20110210
  9. LITICAN [Concomitant]
     Indication: PROPHYLAXIS OF NAUSEA AND VOMITING
     Route: 048
  10. LORAMET [Concomitant]
     Indication: SLEEP DISORDER THERAPY
     Route: 048
     Dates: start: 20110210
  11. CLOSAN [Concomitant]
     Indication: ANXIETY
     Route: 048
     Dates: start: 20110210
  12. VOLTAREN [Concomitant]
     Indication: BACK PAIN
     Route: 048
     Dates: start: 20110307
  13. IMODIUM [Concomitant]
     Indication: DIARRHOEA
     Dosage: AS REQUIRED
     Route: 048
  14. VANDETANIB [Suspect]
     Indication: THYROID CANCER
     Route: 048
     Dates: start: 20110521, end: 20110527
  15. LORAZEPAM [Concomitant]
     Indication: SLEEP DISORDER THERAPY
     Route: 048
     Dates: start: 20110211
  16. FORLAX [Concomitant]
     Indication: CONSTIPATION PROPHYLAXIS
     Dosage: AS REQUIRED
     Route: 048
     Dates: start: 20110210
  17. ALPHA LEO [Concomitant]
     Indication: MINERAL SUPPLEMENTATION
     Route: 048
     Dates: start: 20110210
  18. MEDROL [Concomitant]
     Indication: BACK PAIN
     Route: 048
     Dates: start: 20110307

REACTIONS (1)
  - INTESTINAL OBSTRUCTION [None]
